FAERS Safety Report 4617552-9 (Version None)
Quarter: 2005Q1

REPORT INFORMATION
  Report Type: 
  Country: None (occurrence: None)
  Receive Date: 20050322
  Receipt Date: 20050316
  Transmission Date: 20050727
  Serious: Yes (Death, Life-Threatening, Hospitalization)
  Sender: FDA-Public Use
  Company Number: HQWYE989719MAR04

PATIENT
  Age: 55 Year
  Sex: Female
  Weight: 41.77 kg

DRUGS (17)
  1. RAPAMUNE [Suspect]
     Indication: PROPHYLAXIS AGAINST TRANSPLANT REJECTION
     Dosage: 3 MG 1X PER 1 DAY, ORAL
     Route: 048
     Dates: start: 20040127, end: 20040319
  2. ARANESP [Concomitant]
  3. VANCOMYCIN (VAMCOMYCIN) [Concomitant]
  4. VICODIN [Concomitant]
  5. AXID [Concomitant]
  6. SODIUM BICARBONATE (SODIUM BICARBONATE SODIUM) [Concomitant]
  7. PREDNISONE [Concomitant]
  8. PROGRAF [Concomitant]
  9. LASIX [Concomitant]
  10. LABETALOL HCL [Concomitant]
  11. CATAPRES [Concomitant]
  12. FERROUS SULFATE TAB [Concomitant]
  13. MYCELEX [Concomitant]
  14. VALCYTE [Concomitant]
  15. AMBIEN [Concomitant]
  16. MULTIVITAMIN ^LAPPE^ (VITAMINS NOS) [Concomitant]
  17. NEUTRA-PHOS (POTASSIUM PHOSPHATE DIBASIC/POTASSIUM PHOSPHATE MONOBASIC [Concomitant]

REACTIONS (26)
  - ABSCESS [None]
  - ABSCESS BACTERIAL [None]
  - ANXIETY [None]
  - BLOOD GLUCOSE INCREASED [None]
  - BLOOD PRESSURE SYSTOLIC INCREASED [None]
  - BRAIN ABSCESS [None]
  - DIARRHOEA [None]
  - EMOTIONAL DISTRESS [None]
  - EYE DISORDER [None]
  - FACIAL PALSY [None]
  - HAEMOGLOBIN DECREASED [None]
  - HEART RATE INCREASED [None]
  - HYDROCEPHALUS [None]
  - IMMUNOSUPPRESSION [None]
  - INTERVERTEBRAL DISC DEGENERATION [None]
  - INTRAVENTRICULAR HAEMORRHAGE [None]
  - JUGULAR VEIN THROMBOSIS [None]
  - MENTAL STATUS CHANGES [None]
  - NECK PAIN [None]
  - NYSTAGMUS [None]
  - OEDEMA PERIPHERAL [None]
  - PROGRESSIVE MULTIFOCAL LEUKOENCEPHALOPATHY [None]
  - SPINAL OSTEOARTHRITIS [None]
  - STAPHYLOCOCCAL ABSCESS [None]
  - STAPHYLOCOCCAL INFECTION [None]
  - TACHYCARDIA [None]
